FAERS Safety Report 9473191 (Version 2)
Quarter: 2013Q3

REPORT INFORMATION
  Report Type: Spontaneous
  Country: US (occurrence: US)
  Receive Date: 20130823
  Receipt Date: 20130823
  Transmission Date: 20140515
  Serious: No
  Sender: FDA-Public Use
  Company Number: US-BRISTOL-MYERS SQUIBB COMPANY-18738476

PATIENT
  Age: 63 Year
  Sex: Female

DRUGS (1)
  1. SPRYCEL [Suspect]
     Indication: CHRONIC MYELOID LEUKAEMIA
     Dosage: INTER-DOSE FOR 3-4MNTHS,RESTARTED ON 30MAR13
     Dates: start: 2010

REACTIONS (3)
  - Drug dose omission [Unknown]
  - Fatigue [Unknown]
  - Constipation [Unknown]
